FAERS Safety Report 9060794 (Version 1)
Quarter: 2013Q1

REPORT INFORMATION
  Report Type: Report from Study
  Country: US (occurrence: US)
  Receive Date: 20130204
  Receipt Date: 20130204
  Transmission Date: 20140127
  Serious: Yes (Hospitalization)
  Sender: FDA-Public Use
  Company Number: US-ACTELION-A-NJ2013-77844

PATIENT
  Age: 31 Year
  Sex: Female

DRUGS (3)
  1. VELETRI [Suspect]
     Indication: PULMONARY ARTERIAL HYPERTENSION
     Dosage: 40 NG/KG, PER MIN
     Route: 041
     Dates: start: 20110525
  2. VELETRI [Suspect]
     Dosage: 40 NG/KG, UNK
     Route: 041
  3. LETAIRIS [Concomitant]

REACTIONS (4)
  - Pneumonia [Unknown]
  - Infection [Unknown]
  - Dyspnoea [Unknown]
  - Chest pain [Unknown]
